FAERS Safety Report 5306323-6 (Version None)
Quarter: 2007Q2

REPORT INFORMATION
  Report Type: 
  Country: None (occurrence: None)
  Receive Date: 20070424
  Receipt Date: 20070417
  Transmission Date: 20071010
  Serious: Yes (Other)
  Sender: FDA-Public Use
  Company Number: DE-BOEHRINGER INGELHEIM PHARMACEUTICALS, INC.-2007-DE-02255DE

PATIENT
  Sex: Female

DRUGS (1)
  1. MICARDIS [Suspect]
     Dates: start: 20050101

REACTIONS (1)
  - SYSTEMIC LUPUS ERYTHEMATOSUS [None]
